FAERS Safety Report 7297018-0 (Version None)
Quarter: 2011Q1

REPORT INFORMATION
  Report Type: 
  Country: None (occurrence: None)
  Receive Date: 20110216
  Receipt Date: 20110207
  Transmission Date: 20110831
  Serious: Yes (Other)
  Sender: FDA-Public Use
  Company Number: US-CEPHALON-2011000372

PATIENT
  Sex: Female

DRUGS (1)
  1. NUVIGIL [Suspect]
     Indication: ASTHENIA
     Route: 048
     Dates: start: 20110119, end: 20110120

REACTIONS (4)
  - INSOMNIA [None]
  - PANIC ATTACK [None]
  - PALPITATIONS [None]
  - BLOOD PRESSURE INCREASED [None]
